FAERS Safety Report 18776513 (Version 1)
Quarter: 2021Q1

REPORT INFORMATION
  Report Type: Spontaneous
  Country: US (occurrence: US)
  Receive Date: 20210122
  Receipt Date: 20210122
  Transmission Date: 20210419
  Serious: Yes (Hospitalization)
  Sender: FDA-Public Use
  Company Number: US-TEVA-2021-US-1870055

PATIENT
  Age: 60 Year
  Sex: Female

DRUGS (2)
  1. ZOLEDRONIC?ACID [Suspect]
     Active Substance: ZOLEDRONIC ACID
     Indication: METASTASES TO LYMPH NODES
  2. ZOLEDRONIC?ACID [Suspect]
     Active Substance: ZOLEDRONIC ACID
     Indication: BREAST CANCER METASTATIC
     Route: 065

REACTIONS (3)
  - Anuria [Recovering/Resolving]
  - Acute kidney injury [Recovering/Resolving]
  - Renal tubular necrosis [Recovering/Resolving]
